FAERS Safety Report 18729202 (Version 1)
Quarter: 2021Q1

REPORT INFORMATION
  Report Type: Spontaneous
  Country: US (occurrence: US)
  Receive Date: 20210111
  Receipt Date: 20210111
  Transmission Date: 20210419
  Serious: Yes (Life-Threatening, Other)
  Sender: FDA-Public Use
  Company Number: None

PATIENT
  Age: 60 Year
  Sex: Male
  Weight: 56.25 kg

DRUGS (1)
  1. ENTYVIO [Suspect]
     Active Substance: VEDOLIZUMAB
     Dosage: ?          OTHER FREQUENCY:EVERY 8 WEEKS INFU;?
     Route: 042
     Dates: start: 20190311, end: 20200918

REACTIONS (6)
  - Anger [None]
  - Aggression [None]
  - Depressed level of consciousness [None]
  - Mental disorder [None]
  - Fear [None]
  - Feeling drunk [None]

NARRATIVE: CASE EVENT DATE: 20210101
